FAERS Safety Report 21369005 (Version 1)
Quarter: 2022Q3

REPORT INFORMATION
  Report Type: Spontaneous
  Country: US (occurrence: US)
  Receive Date: 20220923
  Receipt Date: 20220923
  Transmission Date: 20221026
  Serious: No
  Sender: FDA-Public Use
  Company Number: US-SA-2022SA393532

PATIENT
  Age: 71 Year
  Sex: Female

DRUGS (3)
  1. DUPIXENT [Suspect]
     Active Substance: DUPILUMAB
     Indication: Dermatitis atopic
     Dosage: 300 MG, QOD
     Route: 058
  2. FORTEO [Concomitant]
     Active Substance: TERIPARATIDE
  3. ORENCIA [Concomitant]
     Active Substance: ABATACEPT

REACTIONS (2)
  - Dental operation [Unknown]
  - Inappropriate schedule of product administration [Unknown]
